FAERS Safety Report 6011659-X (Version None)
Quarter: 2008Q4

REPORT INFORMATION
  Report Type: 
  Country: None (occurrence: None)
  Receive Date: 20081218
  Receipt Date: 20081207
  Transmission Date: 20090506
  Serious: No
  Sender: FDA-Public Use
  Company Number: US-BAYER-200814797BCC

PATIENT
  Age: 32 Year
  Sex: Female
  Weight: 77 kg

DRUGS (1)
  1. ALEVE [Suspect]
     Indication: DEPRESSION
     Dosage: TOTAL DAILY DOSE: 2640 MG  UNIT DOSE: 220 MG
     Dates: start: 20081207

REACTIONS (1)
  - HEADACHE [None]
